FAERS Safety Report 18693029 (Version 1)
Quarter: 2021Q1

REPORT INFORMATION
  Report Type: Spontaneous
  Country: JP (occurrence: JP)
  Receive Date: 20210104
  Receipt Date: 20210104
  Transmission Date: 20210419
  Serious: Yes (Other)
  Sender: FDA-Public Use
  Company Number: JP-SUN PHARMACEUTICAL INDUSTRIES LTD-2020RR-272804

PATIENT
  Age: 10 Year
  Sex: Female

DRUGS (11)
  1. CYCLOPHOSPHAMIDE. [Suspect]
     Active Substance: CYCLOPHOSPHAMIDE
     Indication: CHRONIC MYELOID LEUKAEMIA
     Dosage: 1000 MILLIGRAM/SQ. METER/ DOSE FOR 2 DOSES
     Route: 065
  2. VINCRISTINE [Suspect]
     Active Substance: VINCRISTINE
     Indication: CHRONIC MYELOID LEUKAEMIA
     Dosage: 1.5 MILLIGRAM/SQ. METER/DOSE, WEEKLY
     Route: 065
  3. DAUNORUBICIN [Suspect]
     Active Substance: DAUNORUBICIN
     Indication: CHRONIC MYELOID LEUKAEMIA
     Dosage: 30 MILLIGRAM/SQ. METER/DOSE, WEEKLY
     Route: 065
  4. CYTARABINE. [Suspect]
     Active Substance: CYTARABINE
     Indication: CHRONIC MYELOID LEUKAEMIA
     Dosage: 75 MG/M2, 4 DOSES WEEKLY
     Route: 065
  5. IMATINIB. [Suspect]
     Active Substance: IMATINIB MESYLATE
     Indication: CHRONIC MYELOID LEUKAEMIA
     Dosage: 340 MILLIGRAM/SQ. METER, DAILY
     Route: 065
  6. IMATINIB. [Suspect]
     Active Substance: IMATINIB MESYLATE
     Dosage: 260 MILLIGRAM/SQ. METER
     Route: 065
  7. PREDNISOLONE. [Suspect]
     Active Substance: PREDNISOLONE
     Indication: CHRONIC MYELOID LEUKAEMIA
     Dosage: 60 MILLIGRAM/SQ. METER, DAILY
     Route: 065
  8. METHOTREXATE. [Suspect]
     Active Substance: METHOTREXATE
     Indication: PROPHYLAXIS AGAINST GRAFT VERSUS HOST DISEASE
     Dosage: UNK
     Route: 065
  9. TACROLIMUS. [Suspect]
     Active Substance: TACROLIMUS
     Indication: PROPHYLAXIS AGAINST GRAFT VERSUS HOST DISEASE
     Dosage: UNK
     Route: 065
  10. MERCAPTOPURINE. [Suspect]
     Active Substance: MERCAPTOPURINE
     Indication: CHRONIC MYELOID LEUKAEMIA
     Dosage: 60 MILLIGRAM/SQ. METER, DAILY
     Route: 065
  11. L?ASPARAGINASE [Suspect]
     Active Substance: ASPARAGINASE
     Indication: CHRONIC MYELOID LEUKAEMIA
     Dosage: 5000U/M2/DOSE FOR 8 DOSES
     Route: 065

REACTIONS (3)
  - Therapeutic product effect incomplete [Unknown]
  - Drug ineffective [Unknown]
  - Sepsis [Unknown]
